FAERS Safety Report 16054998 (Version 1)
Quarter: 2019Q1

REPORT INFORMATION
  Report Type: Spontaneous
  Country: US (occurrence: US)
  Receive Date: 20190307
  Receipt Date: 20190307
  Transmission Date: 20190418
  Serious: Yes (Other)
  Sender: FDA-Public Use
  Company Number: None

PATIENT

DRUGS (1)
  1. RED BORNEO KRATOM BUMBLE BEE [Suspect]
     Active Substance: HERBALS\MITRAGYNINE

REACTIONS (4)
  - Amnesia [None]
  - Decreased appetite [None]
  - Schizophrenia [None]
  - Nausea [None]

NARRATIVE: CASE EVENT DATE: 201902
